FAERS Safety Report 15676349 (Version 1)
Quarter: 2018Q4

REPORT INFORMATION
  Report Type: Report from Study
  Country: BG (occurrence: BG)
  Receive Date: 20181130
  Receipt Date: 20181130
  Transmission Date: 20190205
  Serious: Yes (Other)
  Sender: FDA-Public Use
  Company Number: BG-BAXTER-2018BAX010354

PATIENT
  Age: 13 Year
  Sex: Female

DRUGS (5)
  1. CYTARABINE. [Suspect]
     Active Substance: CYTARABINE
     Indication: ACUTE LYMPHOCYTIC LEUKAEMIA
     Dosage: HIGH DOSE HIGH DOSE; 2 G/M2
     Route: 065
  2. VINCRISTINE [Suspect]
     Active Substance: VINCRISTINE
     Indication: ACUTE LYMPHOCYTIC LEUKAEMIA
     Dosage: 2X2MG
     Route: 065
  3. METHOTREXATE. [Suspect]
     Active Substance: METHOTREXATE
     Indication: ACUTE LYMPHOCYTIC LEUKAEMIA
     Dosage: HIGH DOSE; 5G/M2
     Route: 065
  4. DEXAMETHASONE. [Suspect]
     Active Substance: DEXAMETHASONE
     Indication: ACUTE LYMPHOCYTIC LEUKAEMIA
     Dosage: HIGH DOSE; 20 MG/M2/24H
     Route: 065
  5. ENDOXAN 1 G POWDER FOR SOLUTION FOR INJECTION [Suspect]
     Active Substance: CYCLOPHOSPHAMIDE
     Indication: ACUTE LYMPHOCYTIC LEUKAEMIA
     Dosage: 200 MG/M2/24H
     Route: 065

REACTIONS (10)
  - Amblyopia [Recovering/Resolving]
  - Electrolyte imbalance [Recovering/Resolving]
  - Neuropathy peripheral [Unknown]
  - Posterior reversible encephalopathy syndrome [Recovering/Resolving]
  - Polyneuropathy [Recovering/Resolving]
  - Sepsis [Recovering/Resolving]
  - Disease recurrence [Unknown]
  - Bone marrow failure [Recovering/Resolving]
  - Toxic encephalopathy [Recovering/Resolving]
  - Cytopenia [Unknown]
